FAERS Safety Report 6546025-1 (Version None)
Quarter: 2010Q1

REPORT INFORMATION
  Report Type: 
  Country: None (occurrence: None)
  Receive Date: 20100121
  Receipt Date: 20100121
  Transmission Date: 20100710
  Serious: No
  Sender: FDA-Public Use
  Company Number: None

PATIENT
  Age: 72 Year
  Sex: Female

DRUGS (1)
  1. MORPHINE [Suspect]
     Dosage: 5 MG ONCE IV
     Route: 042

REACTIONS (1)
  - BLOOD PRESSURE DECREASED [None]
